FAERS Safety Report 5393684-5 (Version None)
Quarter: 2007Q3

REPORT INFORMATION
  Report Type: 
  Country: None (occurrence: None)
  Receive Date: 20070723
  Receipt Date: 20070710
  Transmission Date: 20080115
  Serious: Yes (Hospitalization)
  Sender: FDA-Public Use
  Company Number: US-AMGEN-US221605

PATIENT
  Sex: Female

DRUGS (1)
  1. VECTIBIX [Suspect]
     Indication: COLORECTAL CANCER
     Route: 065
     Dates: start: 20070101, end: 20070301

REACTIONS (8)
  - CARDIAC FAILURE CONGESTIVE [None]
  - CHILLS [None]
  - DERMATITIS ACNEIFORM [None]
  - HYPERTENSION [None]
  - MYALGIA [None]
  - OEDEMA PERIPHERAL [None]
  - PYREXIA [None]
  - WEIGHT INCREASED [None]
